FAERS Safety Report 4965240-1 (Version None)
Quarter: 2006Q1

REPORT INFORMATION
  Report Type: 
  Country: None (occurrence: None)
  Receive Date: 20060130
  Receipt Date: 20051024
  Transmission Date: 20060701
  Serious: No
  Sender: FDA-Public Use
  Company Number: COT_0275_2005

PATIENT
  Age: 43 Year
  Sex: Female
  Weight: 63.5036 kg

DRUGS (2)
  1. VENTAVIS [Suspect]
     Indication: PULMONARY HYPERTENSION
     Dosage: 5 MCG 6TO9X /DAY IH
     Route: 055
     Dates: start: 20050928
  2. FUROSEMIDE [Concomitant]

REACTIONS (2)
  - DRY MOUTH [None]
  - FATIGUE [None]
